FAERS Safety Report 9514844 (Version 2)
Quarter: 2014Q1

REPORT INFORMATION
  Report Type: Spontaneous
  Country: US (occurrence: None)
  Receive Date: 20130305
  Receipt Date: 20140306
  Transmission Date: 20141002
  Serious: Yes (Other)
  Sender: FDA-Public Use
  Company Number: 163-21880-12112941

PATIENT
  Age: 61 Year
  Sex: Male

DRUGS (3)
  1. REVLIMID [Suspect]
     Indication: PLASMA CELL MYELOMA
     Dosage: 21 IN 28 D, PO
     Route: 048
     Dates: start: 20110714
  2. VELCADE (BORTEZOMIB) [Concomitant]
  3. POTASSIUM [Concomitant]

REACTIONS (4)
  - Femur fracture [None]
  - Nail growth abnormal [None]
  - Muscle spasms [None]
  - Fatigue [None]
